FAERS Safety Report 4501350-0 (Version None)
Quarter: 2004Q3

REPORT INFORMATION
  Report Type: 
  Country: None (occurrence: None)
  Receive Date: 20040928
  Receipt Date: 20040813
  Transmission Date: 20050211
  Serious: No
  Sender: FDA-Public Use
  Company Number: 04P-163-0270532-00

PATIENT
  Sex: Female
  Weight: 79.3795 kg

DRUGS (7)
  1. HUMIRA [Suspect]
     Indication: RHEUMATOID ARTHRITIS
     Dosage: 40 MG, 1 IN 2 WK, SUBCUTANEOUS
     Route: 058
     Dates: start: 20040101
  2. HYZAAR [Concomitant]
  3. PIOGLITAZONE HCL [Concomitant]
  4. METOPROLOL SUCCINATE [Concomitant]
  5. VENLAFAXINE HYDROCHLORIDE [Concomitant]
  6. RISEDRONATE SODIUM [Concomitant]
  7. CALCIUM [Concomitant]

REACTIONS (3)
  - CONDITION AGGRAVATED [None]
  - HYPOAESTHESIA [None]
  - PARAESTHESIA [None]
